FAERS Safety Report 19627667 (Version 3)
Quarter: 2021Q3

REPORT INFORMATION
  Report Type: Spontaneous
  Country: CZ (occurrence: CZ)
  Receive Date: 20210728
  Receipt Date: 20210819
  Transmission Date: 20211014
  Serious: Yes (Other)
  Sender: FDA-Public Use
  Company Number: CZ-ASTRAZENECA-2021A631075

PATIENT
  Sex: Female

DRUGS (2)
  1. METHYLPHENIDATE. [Concomitant]
     Active Substance: METHYLPHENIDATE
     Indication: ATTENTION DEFICIT HYPERACTIVITY DISORDER
     Route: 065
  2. QUETIAPINE PROLONG [Suspect]
     Active Substance: QUETIAPINE FUMARATE
     Dosage: 400 MG
     Route: 048

REACTIONS (9)
  - Bipolar I disorder [Recovered/Resolved]
  - Accelerated hypertension [Recovered/Resolved]
  - Dysphoria [Recovered/Resolved]
  - Euphoric mood [Recovered/Resolved]
  - Central obesity [Recovering/Resolving]
  - Weight increased [Recovering/Resolving]
  - Irritability [Recovered/Resolved]
  - Sleep deficit [Recovered/Resolved]
  - Type 2 diabetes mellitus [Recovering/Resolving]
